FAERS Safety Report 9347323 (Version 4)
Quarter: 2014Q2

REPORT INFORMATION
  Report Type: Report from Study
  Country: JP (occurrence: JP)
  Receive Date: 20130613
  Receipt Date: 20140501
  Transmission Date: 20141212
  Serious: Yes (Life-Threatening, Disabling)
  Sender: FDA-Public Use
  Company Number: JP-009507513-0112USA02604

PATIENT
  Age: 24 Year
  Sex: Male

DRUGS (23)
  1. CRIXIVAN [Suspect]
     Indication: HIV INFECTION
     Dosage: 800 MG, QD
     Route: 048
     Dates: start: 20000318, end: 20000524
  2. STOCRIN TABLETS 200MG [Suspect]
     Indication: HIV INFECTION
     Dosage: 600 MG, QD
     Route: 048
     Dates: start: 20000724, end: 20000725
  3. STOCRIN TABLETS 200MG [Suspect]
     Dosage: 600 MG, QD
     Route: 048
     Dates: start: 20000925, end: 20001002
  4. VIDEX [Suspect]
     Indication: HIV INFECTION
     Dosage: 125 MG, BID
     Route: 048
     Dates: start: 19941219, end: 19970307
  5. VIDEX [Suspect]
     Dosage: 300 MG, QD
     Route: 048
     Dates: start: 19970307, end: 20010721
  6. VIDEX EC [Suspect]
     Indication: HIV INFECTION
     Dosage: 400 MG, QD
     Route: 048
     Dates: start: 20010721, end: 20040514
  7. INVIRASE [Suspect]
     Indication: HIV INFECTION
     Dosage: 400 MG, BID
     Route: 048
     Dates: start: 19990619, end: 20000318
  8. INVIRASE [Suspect]
     Dosage: 800 MG, QD
     Route: 048
     Dates: start: 20000524, end: 20001224
  9. NORVIR [Suspect]
     Indication: HIV INFECTION
     Dosage: 800 MG, QD, NORVIR SOFT,DIVIDED DOSE FREQUENCY UNKNOWN
     Route: 048
     Dates: start: 19991101, end: 20001224
  10. NORVIR [Suspect]
     Dosage: 100 MG, QD, NORVIR SOFT,DIVIDED DOSE FREQUENCY UNKNOWN
     Route: 048
     Dates: start: 20050425, end: 20080919
  11. NORVIR [Suspect]
     Dosage: 200 MG, QD, NORVIR SOFT,DIVIDED DOSE FREQUENCY UNKNOWN
     Route: 048
     Dates: start: 20080920, end: 20110617
  12. NORVIR [Suspect]
     Indication: HIV INFECTION
     Dosage: 400 MG, BID
     Route: 048
     Dates: start: 19990619, end: 19991031
  13. ZIAGEN [Suspect]
     Indication: HIV INFECTION
     Dosage: 600 MG, QD,DIVIDED DOSE FREQUENCY UNKNOWN
     Route: 048
     Dates: start: 20000724, end: 20000725
  14. ZIAGEN [Suspect]
     Dosage: 600 MG, QD,DIVIDED DOSE FREQUENCY UNKNOWN
     Route: 048
     Dates: start: 20011020, end: 20011027
  15. KALETRA [Suspect]
     Indication: HIV INFECTION
     Dosage: 6 DF, QD,DIVIDED DOSE FREQUENCY UNKNOWN
     Route: 048
     Dates: start: 20001225, end: 20040424
  16. ZERIT [Suspect]
     Indication: HIV INFECTION
     Dosage: 30 MG, BID
     Route: 048
     Dates: start: 19970825, end: 19980227
  17. ZERIT [Suspect]
     Dosage: 40 MG, BID
     Route: 048
     Dates: start: 19980227, end: 19980803
  18. ZERIT [Suspect]
     Dosage: 30 MG, BID
     Route: 048
     Dates: start: 19980803, end: 19981109
  19. ZERIT [Suspect]
     Dosage: 40 MG, BID
     Route: 048
     Dates: start: 19981109, end: 19990619
  20. ZERIT [Suspect]
     Dosage: 80 MG, QD
     Route: 048
     Dates: start: 20001225, end: 20011020
  21. EPIVIR [Suspect]
     Indication: HIV INFECTION
     Dosage: 300 MG, QD
     Route: 048
     Dates: start: 20040515, end: 20080919
  22. FACTOR VIII [Concomitant]
     Indication: HAEMARTHROSIS
     Dosage: 9-10 TIMES/MONTH.1 THOUSAND MILLION UNIT
     Route: 042
     Dates: start: 19991101, end: 20120401
  23. NORVIR [Suspect]
     Indication: HIV INFECTION
     Dosage: 200 MG, QD, DIVIDED DOSE FREQUENCY UNKNOWN
     Route: 048
     Dates: start: 20110618

REACTIONS (5)
  - Pulmonary hypertension [Not Recovered/Not Resolved]
  - Palpitations [Recovering/Resolving]
  - Dizziness [Recovering/Resolving]
  - Palpitations [Recovering/Resolving]
  - Palpitations [Recovering/Resolving]
